FAERS Safety Report 19096624 (Version 3)
Quarter: 2021Q3

REPORT INFORMATION
  Report Type: Spontaneous
  Country: US (occurrence: US)
  Receive Date: 20210406
  Receipt Date: 20210930
  Transmission Date: 20211014
  Serious: Yes (Hospitalization, Other)
  Sender: FDA-Public Use
  Company Number: US-PFIZER INC-2021334524

PATIENT
  Age: 63 Year
  Sex: Female

DRUGS (5)
  1. INLYTA [Suspect]
     Active Substance: AXITINIB
     Dosage: 5 MG
     Dates: start: 20210316
  2. INLYTA [Suspect]
     Active Substance: AXITINIB
     Dosage: 5 MG
     Dates: start: 20210318
  3. INLYTA [Suspect]
     Active Substance: AXITINIB
     Dosage: 5 MG, 2X/DAY
     Dates: start: 20210317
  4. INLYTA [Suspect]
     Active Substance: AXITINIB
     Dosage: 1 MG
     Dates: start: 20210621, end: 20210923
  5. INLYTA [Suspect]
     Active Substance: AXITINIB
     Dosage: 1 MG

REACTIONS (8)
  - Eating disorder [Unknown]
  - Fatigue [Not Recovered/Not Resolved]
  - Skin discomfort [Unknown]
  - Hepatic enzyme abnormal [Unknown]
  - Stomatitis [Unknown]
  - Pulmonary embolism [Unknown]
  - Feeling abnormal [Not Recovered/Not Resolved]
  - Skin exfoliation [Recovered/Resolved]
